FAERS Safety Report 9947725 (Version 1)
Quarter: 2014Q1

REPORT INFORMATION
  Report Type: Report from Study
  Country: US (occurrence: US)
  Receive Date: 20140303
  Receipt Date: 20140303
  Transmission Date: 20141002
  Serious: No
  Sender: FDA-Public Use
  Company Number: US-ABBVIE-13P-163-1056686-00

PATIENT
  Age: 57 Year
  Sex: Male

DRUGS (5)
  1. HUMIRA [Suspect]
     Indication: PSORIASIS
     Dates: start: 20121015, end: 20130204
  2. BENAZEPRIL [Concomitant]
     Indication: BLOOD PRESSURE ABNORMAL
  3. GLYBURIDE [Concomitant]
     Indication: DIABETES MELLITUS
  4. CRESTOR [Concomitant]
     Indication: BLOOD CHOLESTEROL ABNORMAL
     Dosage: AT BEDTIME
  5. METFORMIN [Concomitant]
     Indication: DIABETES MELLITUS
     Dosage: TAKE WITH FOOD

REACTIONS (2)
  - Drug dose omission [Unknown]
  - Hypertension [Not Recovered/Not Resolved]
